FAERS Safety Report 6293884-6 (Version None)
Quarter: 2009Q3

REPORT INFORMATION
  Report Type: 
  Country: None (occurrence: None)
  Receive Date: 20090731
  Receipt Date: 20090731
  Transmission Date: 20100115
  Serious: Yes (Other)
  Sender: FDA-Public Use
  Company Number: None

PATIENT
  Sex: Female
  Weight: 90.7194 kg

DRUGS (1)
  1. LAMOTRIGINE [Suspect]
     Dosage: 200MG 2 1/2 THREE/DAY PO
     Route: 048
     Dates: start: 20080917, end: 20090210

REACTIONS (5)
  - ANHEDONIA [None]
  - APATHY [None]
  - ASTHENIA [None]
  - DYSPHORIA [None]
  - PRODUCT SUBSTITUTION ISSUE [None]
